FAERS Safety Report 20964191 (Version 2)
Quarter: 2022Q2

REPORT INFORMATION
  Report Type: Spontaneous
  Country: US (occurrence: US)
  Receive Date: 20220615
  Receipt Date: 20220615
  Transmission Date: 20220720
  Serious: Yes (Other)
  Sender: FDA-Public Use
  Company Number: US-PFIZER INC-202200820473

PATIENT
  Age: 23 Year
  Sex: Male

DRUGS (4)
  1. METHOTREXATE SODIUM [Suspect]
     Active Substance: METHOTREXATE SODIUM
     Indication: Osteosarcoma
     Dosage: 8.0 G/M2, OVER A PERIOD OF 8 WEEKS
  2. METHOTREXATE SODIUM [Suspect]
     Active Substance: METHOTREXATE SODIUM
     Dosage: 2.1 G/M2, CYCLIC, (GIVEN EVERY 6 WEEKS)
  3. DOXORUBICIN HYDROCHLORIDE [Suspect]
     Active Substance: DOXORUBICIN HYDROCHLORIDE
     Indication: Osteosarcoma
     Dosage: 60 MG/M2, CYCLIC
  4. LEUCOVORIN [Suspect]
     Active Substance: LEUCOVORIN
     Indication: Osteosarcoma
     Dosage: 8.0 G/M2, OVER A PERIOD OF 8 WEEKS

REACTIONS (6)
  - Neurotoxicity [Unknown]
  - Leukoencephalopathy [Unknown]
  - Leukopenia [Unknown]
  - Thrombocytopenia [Unknown]
  - Mucosal inflammation [Unknown]
  - Pyrexia [Unknown]
